FAERS Safety Report 12784289 (Version 1)
Quarter: 2016Q3

REPORT INFORMATION
  Report Type: Spontaneous
  Country: CH (occurrence: CH)
  Receive Date: 20160927
  Receipt Date: 20160927
  Transmission Date: 20161109
  Serious: Yes (Other)
  Sender: FDA-Public Use
  Company Number: CH-BEH-200609875

PATIENT
  Age: 56 Year
  Sex: Male

DRUGS (6)
  1. REDIMUNE [Suspect]
     Active Substance: HUMAN IMMUNOGLOBULIN G
     Dosage: DAILY DOSE QUANTITY: .4, DAILY DOSE UNIT: G/KG B.W.
     Route: 042
  2. ANAFRANIL [Concomitant]
     Active Substance: CLOMIPRAMINE HYDROCHLORIDE
  3. NEURONTIN [Concomitant]
     Active Substance: GABAPENTIN
  4. ASACOL [Concomitant]
     Active Substance: MESALAMINE
  5. TRANXILIUM [Concomitant]
     Active Substance: CLORAZEPATE DIPOTASSIUM
  6. REDIMUNE [Suspect]
     Active Substance: HUMAN IMMUNOGLOBULIN G
     Indication: GUILLAIN-BARRE SYNDROME
     Dosage: DAILY DOSE QUANTITY: .4, DAILY DOSE UNIT: G/KG B.W.
     Route: 042

REACTIONS (2)
  - Dyshidrotic eczema [Recovered/Resolved]
  - Dermatitis exfoliative [Recovered/Resolved]
